FAERS Safety Report 6257141-6 (Version None)
Quarter: 2009Q3

REPORT INFORMATION
  Report Type: 
  Country: None (occurrence: None)
  Receive Date: 20090706
  Receipt Date: 20090522
  Transmission Date: 20100115
  Serious: No
  Sender: FDA-Public Use
  Company Number: US-BAYER-200923546NA

PATIENT
  Age: 73 Year
  Sex: Male
  Weight: 59 kg

DRUGS (7)
  1. ULTRAVIST 300 [Suspect]
     Indication: COMPUTERISED TOMOGRAM ABDOMEN
     Dosage: TOTAL DAILY DOSE: 88 ML
     Route: 042
     Dates: start: 20090522, end: 20090522
  2. PROGRAF [Concomitant]
  3. PREDNISONE [Concomitant]
  4. CELLCEPT [Concomitant]
  5. ACTIGALL [Concomitant]
  6. VOLUMEN [Concomitant]
     Indication: COMPUTERISED TOMOGRAM ABDOMEN
     Dosage: TWO DOSES
     Route: 048
     Dates: start: 20090522, end: 20090522
  7. CREON [Concomitant]

REACTIONS (3)
  - PRURITUS [None]
  - SNEEZING [None]
  - VOMITING [None]
